FAERS Safety Report 4901883-9 (Version None)
Quarter: 2006Q1

REPORT INFORMATION
  Report Type: 
  Country: None (occurrence: None)
  Receive Date: 20060206
  Receipt Date: 20050419
  Transmission Date: 20060701
  Serious: Yes (Death)
  Sender: FDA-Public Use
  Company Number: FR-ABBOTT-05P-056-0297963-00

PATIENT
  Age: 23 Month
  Sex: Male

DRUGS (5)
  1. MICROPAKINE GRANULE [Suspect]
     Indication: MYOCLONIC EPILEPSY
     Dosage: 33 PERCENT
     Route: 048
     Dates: start: 20031001
  2. CLOBAZAM [Suspect]
     Indication: DRUG USE FOR UNKNOWN INDICATION
     Route: 048
     Dates: start: 20031101
  3. PARACETAMOL [Suspect]
     Indication: PYREXIA
     Route: 048
     Dates: start: 20050301, end: 20050302
  4. INFANRIX [Suspect]
     Indication: IMMUNISATION
     Route: 030
     Dates: start: 20050301, end: 20050301
  5. STIRIPENTOL [Suspect]
     Indication: MYOCLONIC EPILEPSY
     Route: 048
     Dates: start: 20040201

REACTIONS (4)
  - ASTHENIA [None]
  - PYREXIA [None]
  - SOMNOLENCE [None]
  - SUDDEN DEATH [None]
